FAERS Safety Report 10726954 (Version 2)
Quarter: 2015Q1

REPORT INFORMATION
  Report Type: Spontaneous
  Country: JP (occurrence: JP)
  Receive Date: 20150121
  Receipt Date: 20150217
  Transmission Date: 20150721
  Serious: Yes (Other)
  Sender: FDA-Public Use
  Company Number: PHHY2015JP006652

PATIENT
  Age: 16 Year
  Sex: Male

DRUGS (9)
  1. OFLOXACIN SANDOZ [Suspect]
     Active Substance: OFLOXACIN
     Indication: PRODUCT USED FOR UNKNOWN INDICATION
     Route: 065
     Dates: start: 200803
  2. OFLOXACIN SANDOZ [Suspect]
     Active Substance: OFLOXACIN
     Route: 065
     Dates: start: 200805
  3. ALUMINIUM SILICATE [Concomitant]
     Indication: NASOPHARYNGITIS
     Route: 065
     Dates: start: 20050525
  4. SCOPOLIA EXTRACT [Concomitant]
     Indication: NASOPHARYNGITIS
     Route: 065
     Dates: start: 20050525
  5. ALBUMIN TANNATE [Concomitant]
     Active Substance: ALBUMIN BOVINE\TANNIC ACID
     Indication: NASOPHARYNGITIS
     Route: 065
     Dates: start: 20050525
  6. TRANILAST [Concomitant]
     Active Substance: TRANILAST
     Indication: PRODUCT USED FOR UNKNOWN INDICATION
     Route: 048
  7. DOMPERIDONE [Concomitant]
     Active Substance: DOMPERIDONE
     Indication: NASOPHARYNGITIS
     Route: 065
     Dates: start: 20050525
  8. BIOFERMIN R [Concomitant]
     Active Substance: BACILLUS SUBTILIS\LACTOBACILLUS ACIDOPHILUS\STREPTOCOCCUS FAECAIS
     Indication: NASOPHARYNGITIS
     Route: 065
     Dates: start: 20050525
  9. LEVOFLOXACIN. [Suspect]
     Active Substance: LEVOFLOXACIN
     Indication: NASOPHARYNGITIS
     Route: 065
     Dates: start: 20050525

REACTIONS (9)
  - Flushing [Unknown]
  - Anaphylactic shock [Unknown]
  - Type I hypersensitivity [Unknown]
  - Hypotension [Unknown]
  - Urticaria [Unknown]
  - Vision blurred [Unknown]
  - Anaphylactic reaction [Unknown]
  - Generalised erythema [Unknown]
  - Dyspnoea [Unknown]
